FAERS Safety Report 20645322 (Version 15)
Quarter: 2023Q2

REPORT INFORMATION
  Report Type: Report from Study
  Country: US (occurrence: None)
  Receive Date: 20220328
  Receipt Date: 20230607
  Transmission Date: 20230722
  Serious: Yes (Life-Threatening, Hospitalization)
  Sender: FDA-Public Use
  Company Number: US-ROCHE-3060848

PATIENT
  Age: 64 Year
  Sex: Female

DRUGS (15)
  1. ATEZOLIZUMAB [Suspect]
     Active Substance: ATEZOLIZUMAB
     Indication: Hormone receptor positive HER2 negative breast cancer
     Dosage: ON 09/MAR/2022, MOST RECENT DOSE OF ATEZOLIZUMAB WAS ADMINISTERED PRIOR TO ADVERSE EVENT 840 MG.
     Route: 041
     Dates: start: 20220126
  2. ABEMACICLIB [Suspect]
     Active Substance: ABEMACICLIB
     Indication: Hormone receptor positive HER2 negative breast cancer
     Dosage: ON 22/MAR/2022, START DATE OF MOST RECENT DOSE OF STUDY DRUG PRIOR TO AE?TWICE DAILY DURING EACH 28-
     Route: 048
     Dates: start: 20220126
  3. FULVESTRANT [Suspect]
     Active Substance: FULVESTRANT
     Indication: Hormone receptor positive HER2 negative breast cancer
     Dosage: DOSE LAST STUDY DRUG ADMIN PRIOR AE 500 MG?ON 23/FEB2022 START DATE OF MOST RECENT DOSE OF STUDY DRU
     Route: 030
     Dates: start: 20220126
  4. VITAMIN B12 [Concomitant]
     Active Substance: CYANOCOBALAMIN
     Dosage: 1 TABLET
     Route: 048
  5. CHOLECALCIFEROL [Concomitant]
     Active Substance: CHOLECALCIFEROL
     Dosage: 10000 U
     Route: 048
  6. DICLOFENAC [Concomitant]
     Active Substance: DICLOFENAC
     Indication: Back pain
     Route: 048
     Dates: start: 20210325
  7. MAGNESIUM OXIDE [Concomitant]
     Active Substance: MAGNESIUM OXIDE
     Route: 048
  8. ZINC SULFATE [Concomitant]
     Active Substance: ZINC SULFATE
     Indication: Prophylaxis
     Route: 048
     Dates: start: 2021
  9. XGEVA [Concomitant]
     Active Substance: DENOSUMAB
     Indication: Osteoporosis
     Route: 030
     Dates: start: 20210520
  10. HERBALS\TURMERIC [Concomitant]
     Active Substance: HERBALS\TURMERIC
     Indication: Prophylaxis
     Route: 048
     Dates: start: 202103
  11. COENZYME Q10 [Concomitant]
     Active Substance: DIETARY SUPPLEMENT\UBIDECARENONE
     Indication: Prophylaxis
     Dosage: 1 TABLET
     Route: 048
     Dates: start: 202112
  12. ACLOVIR [Concomitant]
     Route: 048
     Dates: start: 20220330
  13. MINERALS\VITAMINS [Concomitant]
     Active Substance: MINERALS\VITAMINS
     Indication: Pleural effusion
     Route: 048
     Dates: start: 20220330
  14. CALCIUM VITAMIN D3 [Concomitant]
     Indication: Pleural effusion
     Dosage: 1 TAB
     Route: 048
     Dates: start: 20220330
  15. TRIAMCINOLONE [Concomitant]
     Active Substance: TRIAMCINOLONE
     Indication: Pleural effusion
     Route: 061
     Dates: start: 20220330

REACTIONS (2)
  - Interstitial lung disease [Not Recovered/Not Resolved]
  - Malignant pleural effusion [Recovering/Resolving]

NARRATIVE: CASE EVENT DATE: 20220323
